FAERS Safety Report 8484673-2 (Version None)
Quarter: 2012Q3

REPORT INFORMATION
  Report Type: 
  Country: None (occurrence: None)
  Receive Date: 20120703
  Receipt Date: 20120412
  Transmission Date: 20120928
  Serious: No
  Sender: FDA-Public Use
  Company Number: US-TEVA-333428USA

PATIENT
  Sex: Female

DRUGS (1)
  1. NUVIGIL [Suspect]
     Indication: FATIGUE
     Dosage: 225 MILLIGRAM;
     Route: 048

REACTIONS (5)
  - FEELING ABNORMAL [None]
  - DISTRACTIBILITY [None]
  - DEPRESSION [None]
  - OBSESSIVE THOUGHTS [None]
  - CLAUSTROPHOBIA [None]
